FAERS Safety Report 9536138 (Version 1)
Quarter: 2013Q3

REPORT INFORMATION
  Report Type: Spontaneous
  Country: DE (occurrence: DE)
  Receive Date: 20130919
  Receipt Date: 20130919
  Transmission Date: 20140515
  Serious: Yes (Death, Other)
  Sender: FDA-Public Use
  Company Number: DE-CELGENEUS-062-21880-13091077

PATIENT
  Age: 73 Year
  Sex: Male

DRUGS (2)
  1. REVLIMID [Suspect]
     Indication: PLASMA CELL MYELOMA
     Route: 048
     Dates: start: 201211
  2. DEXAMETHASONE [Concomitant]
     Indication: PLASMA CELL MYELOMA
     Route: 065
     Dates: start: 201211

REACTIONS (5)
  - Corona virus infection [Fatal]
  - Septic shock [Fatal]
  - Thrombocytopenia [Unknown]
  - Renal failure [Unknown]
  - Herpes simplex [Unknown]
